FAERS Safety Report 4604078-1 (Version None)
Quarter: 2005Q1

REPORT INFORMATION
  Report Type: 
  Country: None (occurrence: None)
  Receive Date: 20050309
  Receipt Date: 20050309
  Transmission Date: 20050727
  Serious: No
  Sender: FDA-Public Use
  Company Number: None

PATIENT
  Age: 71 Year

DRUGS (2)
  1. WARFARIN [Suspect]
     Indication: HYPOPROTHROMBINAEMIA
     Dosage: 1 DAILY
     Dates: start: 20041106
  2. WARFARIN [Suspect]
     Indication: HYPOPROTHROMBINAEMIA
     Dosage: 1 DAILY
     Dates: start: 20041106

REACTIONS (2)
  - HYPOPROTHROMBINAEMIA [None]
  - PHARMACEUTICAL PRODUCT COMPLAINT [None]
